FAERS Safety Report 19472388 (Version 1)
Quarter: 2021Q2

REPORT INFORMATION
  Report Type: Spontaneous
  Country: US (occurrence: US)
  Receive Date: 20210629
  Receipt Date: 20210629
  Transmission Date: 20210717
  Serious: No
  Sender: FDA-Public Use
  Company Number: US-PFIZER INC-2021635918

PATIENT
  Age: 76 Year
  Sex: Female
  Weight: 58.97 kg

DRUGS (1)
  1. MYCOBUTIN [Suspect]
     Active Substance: RIFABUTIN
     Indication: MYCOBACTERIUM AVIUM COMPLEX INFECTION
     Dosage: 150 MG (TWICE DAILY FOR THREE DAYS OUT OF THE WEEK)
     Route: 048

REACTIONS (3)
  - Therapeutic product effect incomplete [Unknown]
  - Product dispensing error [Unknown]
  - Product prescribing issue [Unknown]
